FAERS Safety Report 7941335-5 (Version None)
Quarter: 2011Q4

REPORT INFORMATION
  Report Type: 
  Country: None (occurrence: None)
  Receive Date: 20111122
  Receipt Date: 20111110
  Transmission Date: 20120403
  Serious: Yes (Hospitalization)
  Sender: FDA-Public Use
  Company Number: 1000025530

PATIENT
  Age: 90 Year
  Sex: Female

DRUGS (8)
  1. MEMANTINE HYDROCHLORIDE [Suspect]
     Indication: DEMENTIA ALZHEIMER'S TYPE
     Dosage: 10 MG (10 MG, 1 IN 1 N), ORAL
     Route: 048
     Dates: start: 20111104
  2. ASPIRIN [Concomitant]
  3. MOXONIDINE (MOXONIDINE) (MOXONIDINE) [Concomitant]
  4. MEMANTINE HYDROCHLORIDE [Suspect]
     Indication: DEMENTIA ALZHEIMER'S TYPE
     Dosage: 20 MG (20 MG, 1  IN 1 D),ORAL
     Route: 048
     Dates: start: 20110517, end: 20111103
  5. PANTOPRAZOLE (PANTOPRAZOLE) (PANTOPRAZOLE) [Concomitant]
  6. DONEPEZIL (DONEPEZIL)(DONEPEZIL) [Concomitant]
  7. BENDROFLUMETHIAZIDE (BENDROFLUMETHIAZIDE) (BENDROFLUMETHIAZIDE) [Concomitant]
  8. NIFEDIPINE MODIFIED RELEASE (NIFEDIPINE)(NIFEDIPINE) [Concomitant]

REACTIONS (5)
  - HAEMOGLOBIN DECREASED [None]
  - MOBILITY DECREASED [None]
  - C-REACTIVE PROTEIN INCREASED [None]
  - BALANCE DISORDER [None]
  - SOMNOLENCE [None]
